FAERS Safety Report 5606483-3 (Version None)
Quarter: 2008Q1

REPORT INFORMATION
  Report Type: 
  Country: None (occurrence: None)
  Receive Date: 20080125
  Receipt Date: 20080114
  Transmission Date: 20080703
  Serious: Yes (Other)
  Sender: FDA-Public Use
  Company Number: 2007EN000307

PATIENT
  Age: 32 Year
  Sex: Female

DRUGS (5)
  1. OPANA ER [Suspect]
     Indication: INTERVERTEBRAL DISC PROTRUSION
     Dosage: 2 TABS BID, PER ORAL
     Route: 048
     Dates: start: 20071001, end: 20071029
  2. OPANA ER [Suspect]
     Indication: INTERVERTEBRAL DISC PROTRUSION
     Dosage: 1 TAB BID, PER ORAL
     Route: 048
     Dates: start: 20070814, end: 20071001
  3. VICODIN [Concomitant]
  4. LYRICA [Concomitant]
  5. SKELAXIN [Concomitant]

REACTIONS (6)
  - AGITATION [None]
  - ANGER [None]
  - BREAKTHROUGH PAIN [None]
  - INTENTIONAL DRUG MISUSE [None]
  - IRRITABILITY [None]
  - TREATMENT NONCOMPLIANCE [None]
